FAERS Safety Report 17727373 (Version 1)
Quarter: 2020Q2

REPORT INFORMATION
  Report Type: Report from Study
  Country: AU (occurrence: AU)
  Receive Date: 20200430
  Receipt Date: 20200430
  Transmission Date: 20200714
  Serious: Yes (Life-Threatening, Hospitalization, Other)
  Sender: FDA-Public Use
  Company Number: AU-SAKK-2019SA266538AA

PATIENT
  Age: 78 Year
  Sex: Male
  Weight: 87 kg

DRUGS (20)
  1. POMALIDOMIDE [Suspect]
     Active Substance: POMALIDOMIDE
     Indication: PLASMA CELL MYELOMA
     Dosage: 4 MG, QD
     Route: 048
     Dates: start: 20190918, end: 20191008
  2. XARELTO [Concomitant]
     Active Substance: RIVAROXABAN
     Dosage: UNK UNK, UNK
     Route: 048
     Dates: start: 2017
  3. PARACETAMOL [Concomitant]
     Active Substance: ACETAMINOPHEN
     Indication: PROPHYLAXIS
     Dosage: 1000 MG, 1X
     Route: 048
     Dates: start: 20191002, end: 20191002
  4. IMMUNOGLOBULIN [IMMUNOGLOBULINS NOS] [Concomitant]
     Active Substance: IMMUNE GLOBULIN NOS
     Dosage: UNK UNK, UNK
     Route: 042
     Dates: start: 20170621
  5. VITAMIN C [Concomitant]
     Active Substance: ASCORBIC ACID
     Dosage: UNK UNK, UNK
     Route: 048
     Dates: start: 1969
  6. BACTRIM [Concomitant]
     Active Substance: SULFAMETHOXAZOLE\TRIMETHOPRIM
     Indication: PROPHYLAXIS
     Dosage: UNK UNK, UNK
     Route: 048
     Dates: start: 20190821
  7. ISATUXIMAB [Suspect]
     Active Substance: ISATUXIMAB
     Dosage: 1000 MG, QW
     Route: 058
     Dates: start: 20190821, end: 20190821
  8. SOTALOL. [Concomitant]
     Active Substance: SOTALOL
     Dosage: UNK UNK, UNK
     Route: 048
     Dates: start: 2017
  9. KEFLEX [Concomitant]
     Active Substance: CEPHALEXIN
     Indication: PROPHYLAXIS
     Dosage: UNK, UNK
     Route: 048
     Dates: start: 20191002, end: 20191006
  10. MIDAZOLAM. [Concomitant]
     Active Substance: MIDAZOLAM
     Dosage: UNK, UNK
     Route: 042
     Dates: start: 20190930, end: 20190930
  11. VALACYCLOVIR [Concomitant]
     Active Substance: VALACYCLOVIR HYDROCHLORIDE
     Indication: PROPHYLAXIS
     Dosage: UNK UNK, UNK
     Route: 048
     Dates: start: 20190821
  12. ESOMEPRAZOLE. [Concomitant]
     Active Substance: ESOMEPRAZOLE MAGNESIUM
     Indication: PROPHYLAXIS
     Dosage: UNK UNK, UNK
     Route: 048
     Dates: start: 20190821
  13. POMALIDOMIDE [Suspect]
     Active Substance: POMALIDOMIDE
     Dosage: 4 MG, QD
     Route: 048
     Dates: start: 20190821, end: 20190821
  14. CENTRUM MEN [Concomitant]
     Dosage: UNK UNK, UNK
     Route: 048
     Dates: start: 1969
  15. FLUCONAZOLE. [Concomitant]
     Active Substance: FLUCONAZOLE
     Indication: PROPHYLAXIS
     Dosage: UNK UNK, UNK
     Route: 048
     Dates: start: 20190821
  16. ISATUXIMAB [Suspect]
     Active Substance: ISATUXIMAB
     Indication: PLASMA CELL MYELOMA
     Dosage: 1000 MG, QOW
     Route: 058
     Dates: start: 20191002, end: 20191002
  17. DEXAMETHASONE. [Suspect]
     Active Substance: DEXAMETHASONE
     Indication: PLASMA CELL MYELOMA
     Dosage: 20 MG, QD
     Route: 048
     Dates: start: 20191009, end: 20191009
  18. DEXAMETHASONE. [Suspect]
     Active Substance: DEXAMETHASONE
     Dosage: 20 MG, QD
     Route: 048
     Dates: start: 20190821, end: 20190821
  19. LORATADINE. [Concomitant]
     Active Substance: LORATADINE
     Indication: PROPHYLAXIS
     Dosage: UNK UNK, 1X
     Route: 048
     Dates: start: 20191002, end: 20191002
  20. CEPHAZOLIN [CEFAZOLIN] [Concomitant]
     Dosage: UNK, UNK
     Route: 042
     Dates: start: 20190930, end: 20190930

REACTIONS (2)
  - Atrial fibrillation [Not Recovered/Not Resolved]
  - Neutropenia [Recovered/Resolved]

NARRATIVE: CASE EVENT DATE: 20190923
